FAERS Safety Report 10065196 (Version 1)
Quarter: 2014Q1

REPORT INFORMATION
  Report Type: Spontaneous
  Country: US (occurrence: None)
  Receive Date: 20140328
  Receipt Date: 20140328
  Transmission Date: 20141002
  Serious: No
  Sender: FDA-Public Use
  Company Number: CABO-14003988

PATIENT
  Age: 66 Year
  Sex: Male

DRUGS (6)
  1. COMETRIQ [Suspect]
     Indication: PRODUCT USED FOR UNKNOWN INDICATION
     Route: 048
     Dates: start: 20131121
  2. DOXAZOSIN (DOXAZOSIN) [Concomitant]
  3. FINASTERIDE (FINASTERIDE) [Concomitant]
  4. OMEPRAZOLE (OMEPRAZOLE) [Concomitant]
  5. HUMULIN (INSULIN HUMAN, INSULIN HUMAN INJECTION, ISOPHANE) [Concomitant]
  6. OXYCODONE (OXYCODONE) [Concomitant]

REACTIONS (1)
  - Skin discolouration [None]
